FAERS Safety Report 11455778 (Version 1)
Quarter: 2015Q3

REPORT INFORMATION
  Report Type: Spontaneous
  Country: CN (occurrence: CN)
  Receive Date: 20150831
  Receipt Date: 20150831
  Transmission Date: 20151125
  Serious: Yes (Other)
  Sender: FDA-Public Use
  Company Number: CN-GLAXOSMITHKLINE-CN2015GSK121640

PATIENT
  Age: 16 Year
  Sex: Female
  Weight: 50 kg

DRUGS (5)
  1. SYMBICORT [Suspect]
     Active Substance: BUDESONIDE\FORMOTEROL FUMARATE DIHYDRATE
     Indication: ASTHMA
     Dosage: UNK
     Dates: start: 201507
  2. SERETIDE [Suspect]
     Active Substance: FLUTICASONE FUROATE\SALMETEROL XINAFOATE
     Indication: ASTHMA
     Dosage: 50/250UG,1 PUFF(S), BID
     Route: 055
     Dates: start: 201409
  3. SERETIDE [Suspect]
     Active Substance: FLUTICASONE FUROATE\SALMETEROL XINAFOATE
     Dosage: 50/250UG, 1 PUFF(S), 1D
     Dates: start: 201409
  4. SERETIDE [Suspect]
     Active Substance: FLUTICASONE FUROATE\SALMETEROL XINAFOATE
     Dosage: 50/250UG, 60 PUFFS
  5. SINGULAIR [Suspect]
     Active Substance: MONTELUKAST SODIUM
     Indication: ASTHMA
     Dosage: UNK
     Route: 048
     Dates: start: 201409

REACTIONS (7)
  - Drug administration error [Unknown]
  - Myalgia [Unknown]
  - Drug ineffective [Unknown]
  - Underdose [Unknown]
  - Seizure [Unknown]
  - Arthralgia [Unknown]
  - Disease recurrence [Unknown]

NARRATIVE: CASE EVENT DATE: 201409
